FAERS Safety Report 7349996-9 (Version None)
Quarter: 2011Q1

REPORT INFORMATION
  Report Type: 
  Country: None (occurrence: None)
  Receive Date: 20110314
  Receipt Date: 20110307
  Transmission Date: 20110831
  Serious: Yes (Other)
  Sender: FDA-Public Use
  Company Number: US-ROCHE-764057

PATIENT
  Sex: Female

DRUGS (4)
  1. NEURONTIN [Suspect]
     Route: 065
  2. VALIUM [Suspect]
     Route: 065
  3. CLONIDINE [Suspect]
     Route: 065
  4. SAVELLA [Suspect]
     Route: 065

REACTIONS (1)
  - SPINAL OPERATION [None]
